FAERS Safety Report 20031586 (Version 5)
Quarter: 2024Q4

REPORT INFORMATION
  Report Type: Report from Study
  Country: FR (occurrence: FR)
  Receive Date: 20211103
  Receipt Date: 20241003
  Transmission Date: 20250114
  Serious: Yes (Disabling)
  Sender: ABBVIE
  Company Number: FR-ABBVIE-21K-056-4142088-00

PATIENT
  Age: 34 Year
  Sex: Female

DRUGS (4)
  1. RISANKIZUMAB [Suspect]
     Active Substance: RISANKIZUMAB
     Indication: Psoriasis
     Route: 058
  2. IXEKIZUMAB [Suspect]
     Active Substance: IXEKIZUMAB
     Indication: Psoriasis
     Route: 065
     Dates: start: 20210318, end: 20210418
  3. IXEKIZUMAB [Suspect]
     Active Substance: IXEKIZUMAB
     Indication: Psoriasis
     Route: 065
     Dates: start: 20210419, end: 20210719
  4. IXEKIZUMAB [Suspect]
     Active Substance: IXEKIZUMAB
     Indication: Psoriasis
     Route: 065
     Dates: start: 20210720

REACTIONS (3)
  - Back pain [Not Recovered/Not Resolved]
  - Angiopathy [Recovered/Resolved]
  - Hypersensitivity [Recovered/Resolved]

NARRATIVE: CASE EVENT DATE: 20210904
